FAERS Safety Report 9155009 (Version 1)
Quarter: 2013Q1

REPORT INFORMATION
  Report Type: Report from Study
  Country: US (occurrence: US)
  Receive Date: 20130311
  Receipt Date: 20130311
  Transmission Date: 20140127
  Serious: No
  Sender: FDA-Public Use
  Company Number: US-ABBOTT-13P-163-1045662-00

PATIENT
  Age: 39 Year
  Sex: Female
  Weight: 55.39 kg

DRUGS (1)
  1. LUPRON DEPOT [Suspect]
     Indication: ENDOMETRIOSIS
     Route: 030
     Dates: start: 20130102

REACTIONS (3)
  - Pruritus [Unknown]
  - Vaginal haemorrhage [Not Recovered/Not Resolved]
  - Weight decreased [Unknown]
